FAERS Safety Report 6423860-1 (Version None)
Quarter: 2009Q4

REPORT INFORMATION
  Report Type: 
  Country: None (occurrence: None)
  Receive Date: 20091030
  Receipt Date: 20091030
  Transmission Date: 20100525
  Serious: Yes (Hospitalization)
  Sender: FDA-Public Use
  Company Number: None

PATIENT
  Age: 76 Year
  Sex: Male
  Weight: 107.5 kg

DRUGS (2)
  1. INSULIN [Suspect]
     Indication: DIABETES MELLITUS
     Dosage: 12 UNITS TID SQ
     Route: 058
     Dates: start: 20080118
  2. INSULIN [Suspect]
     Indication: DIABETES MELLITUS
     Dosage: 45 UNITS HS SQ
     Route: 058
     Dates: start: 20081021

REACTIONS (4)
  - DYSPNOEA [None]
  - HYPERHIDROSIS [None]
  - HYPOGLYCAEMIA [None]
  - HYPOPHAGIA [None]
